FAERS Safety Report 23785142 (Version 2)
Quarter: 2024Q2

REPORT INFORMATION
  Report Type: Spontaneous
  Country: US (occurrence: US)
  Receive Date: 20240425
  Receipt Date: 20240503
  Transmission Date: 20240716
  Serious: Yes (Other)
  Sender: FDA-Public Use
  Company Number: US-PFIZER INC-202400093267

PATIENT
  Age: 29 Year
  Sex: Male

DRUGS (3)
  1. CIBINQO [Suspect]
     Active Substance: ABROCITINIB
     Dosage: UNK
     Dates: start: 2023
  2. CIBINQO [Suspect]
     Active Substance: ABROCITINIB
     Dosage: 100 MG, DAILY
     Route: 048
     Dates: start: 202404
  3. CIBINQO [Suspect]
     Active Substance: ABROCITINIB
     Dosage: 200 MG, DAILY
     Route: 048

REACTIONS (8)
  - Eczema herpeticum [Unknown]
  - Withdrawal syndrome [Unknown]
  - Pruritus [Unknown]
  - Dry skin [Unknown]
  - Scab [Unknown]
  - Erythema [Unknown]
  - Dermatitis [Unknown]
  - Breast discharge [Unknown]
